FAERS Safety Report 20619698 (Version 2)
Quarter: 2022Q2

REPORT INFORMATION
  Report Type: Spontaneous
  Country: FR (occurrence: FR)
  Receive Date: 20220322
  Receipt Date: 20220401
  Transmission Date: 20220721
  Serious: Yes (Hospitalization)
  Sender: FDA-Public Use
  Company Number: None

PATIENT
  Age: 45 Year
  Sex: Female
  Weight: 62 kg

DRUGS (17)
  1. VELETRI [Suspect]
     Active Substance: EPOPROSTENOL
     Indication: Pulmonary arterial hypertension
     Dosage: (18NG/KG)
     Route: 041
     Dates: start: 20070725
  2. AMBRISENTAN [Suspect]
     Active Substance: AMBRISENTAN
     Indication: Pulmonary arterial hypertension
     Route: 048
     Dates: start: 2007
  3. TADALAFIL [Concomitant]
     Active Substance: TADALAFIL
     Dates: start: 2018
  4. COVID-19 VACCINE [Concomitant]
     Indication: COVID-19 prophylaxis
  5. PNEUMOCOCCAL VACCINE POLYVALENT NOS [Concomitant]
     Active Substance: PNEUMOCOCCAL VACCINE POLYVALENT
     Indication: Infection prophylaxis
  6. ESOMEPRAZOLE [Concomitant]
     Active Substance: ESOMEPRAZOLE
  7. POTASSIUM CHLORIDE [Concomitant]
     Active Substance: POTASSIUM CHLORIDE
  8. FUROSEMIDE [Concomitant]
     Active Substance: FUROSEMIDE
     Dosage: 1/2 TABLET IN THE MORNING
  9. FLUINDIONE [Concomitant]
     Active Substance: FLUINDIONE
     Dosage: ONE AND HALF TABLET IN THE EVENING
  10. BROMAZEPAM [Concomitant]
     Active Substance: BROMAZEPAM
     Dosage: 1/2 TABLET IN THE EVENING
  11. DESLORATADINE [Concomitant]
     Active Substance: DESLORATADINE
  12. IMODIUM [Concomitant]
     Active Substance: LOPERAMIDE HYDROCHLORIDE
     Indication: Diarrhoea
  13. ETHINYL ESTRADIOL\LEVONORGESTREL [Concomitant]
     Active Substance: ETHINYL ESTRADIOL\LEVONORGESTREL
  14. VOGALENE [Concomitant]
     Active Substance: METOPIMAZINE
     Dosage: FOR 30 DAYS BEFORE MEALS
  15. DOLIPRANE [Concomitant]
     Active Substance: ACETAMINOPHEN
  16. DAFALGAN CODEINE [Concomitant]
     Active Substance: ACETAMINOPHEN\CODEINE PHOSPHATE
     Dosage: 30/500 MG, IF NEEDED
  17. CARBOCYSTEINE [Concomitant]
     Active Substance: CARBOCYSTEINE
     Dosage: 1 TABLESPOON MORNING, NOON AND EVENING

REACTIONS (2)
  - Myelofibrosis [Not Recovered/Not Resolved]
  - Thrombocytopenia [Not Recovered/Not Resolved]

NARRATIVE: CASE EVENT DATE: 20150101
